FAERS Safety Report 19410503 (Version 1)
Quarter: 2021Q2

REPORT INFORMATION
  Report Type: Other
  Country: CA (occurrence: CA)
  Receive Date: 20210614
  Receipt Date: 20210614
  Transmission Date: 20210717
  Serious: Yes (Other)
  Sender: FDA-Public Use
  Company Number: CA-CELLTRION INC.-2021CA007736

PATIENT

DRUGS (5)
  1. IMOVANE [Concomitant]
     Active Substance: ZOPICLONE
     Dosage: 7.5 MILLIGRAM 1 EVERY 1 DAYS
     Route: 048
  2. PREDNISONE. [Suspect]
     Active Substance: PREDNISONE
     Indication: PRODUCT USED FOR UNKNOWN INDICATION
     Dosage: 75 MILLIGRAM 1 EVERY 1 DAYS
     Route: 048
  3. RITUXIMAB (UNKNOWN) [Suspect]
     Active Substance: RITUXIMAB
     Indication: THROMBOTIC THROMBOCYTOPENIC PURPURA
     Route: 042
  4. ELAVIL [Concomitant]
     Active Substance: AMITRIPTYLINE HYDROCHLORIDE
     Route: 048
  5. ROSUVASTATIN CALCIUM. [Concomitant]
     Active Substance: ROSUVASTATIN CALCIUM
     Dosage: 10 MILLIGRAM 1 EVERY 1 DAYS
     Route: 048

REACTIONS (26)
  - Platelet count decreased [Unknown]
  - Blood bilirubin increased [Unknown]
  - Mean cell haemoglobin concentration decreased [Unknown]
  - Red cell fragmentation syndrome [Unknown]
  - Sleep disorder [Unknown]
  - White blood cell count increased [Unknown]
  - Red blood cell count decreased [Unknown]
  - Varicella zoster virus infection [Unknown]
  - Off label use [Unknown]
  - Contusion [Unknown]
  - Hypokalaemia [Unknown]
  - Neutrophil count increased [Unknown]
  - Anxiety [Unknown]
  - Blood lactate dehydrogenase increased [Unknown]
  - Haematocrit decreased [Unknown]
  - Mean cell haemoglobin increased [Unknown]
  - Monocyte count decreased [Unknown]
  - Reticulocyte percentage increased [Unknown]
  - Cushingoid [Unknown]
  - Irritability [Unknown]
  - Lymphocyte count decreased [Unknown]
  - Increased appetite [Unknown]
  - Mean cell volume increased [Unknown]
  - Mean platelet volume decreased [Unknown]
  - Red cell distribution width increased [Unknown]
  - Haemoglobin decreased [Unknown]
